FAERS Safety Report 6055645-2 (Version None)
Quarter: 2009Q1

REPORT INFORMATION
  Report Type: 
  Country: None (occurrence: None)
  Receive Date: 20090123
  Receipt Date: 20081219
  Transmission Date: 20090719
  Serious: No
  Sender: FDA-Public Use
  Company Number: 8033765

PATIENT
  Age: 23 Year
  Sex: Female

DRUGS (7)
  1. KEPPRA [Suspect]
     Indication: EPILEPSY
     Dosage: 1000 MG PO
     Route: 048
     Dates: start: 20040101
  2. KEPPRA [Suspect]
     Indication: EPILEPSY
     Dosage: 500 MG /D
     Dates: start: 20060401
  3. HUMALOG [Concomitant]
  4. VITAMIN TAB [Concomitant]
  5. FOLIC ACID [Concomitant]
  6. FOLIC ACID [Concomitant]
  7. FOLATE [Concomitant]

REACTIONS (4)
  - DRUG EXPOSURE DURING PREGNANCY [None]
  - HYPOGLYCAEMIA [None]
  - UNRESPONSIVE TO STIMULI [None]
  - VULVOVAGINAL CANDIDIASIS [None]
